FAERS Safety Report 9787626 (Version 2)
Quarter: 2013Q4

REPORT INFORMATION
  Report Type: Spontaneous
  Country: ES (occurrence: ES)
  Receive Date: 20131230
  Receipt Date: 20131230
  Transmission Date: 20140711
  Serious: Yes (Other)
  Sender: FDA-Public Use
  Company Number: ES-RANBAXY-2011US-41007

PATIENT
  Sex: Female

DRUGS (3)
  1. RISPERIDONE [Suspect]
     Indication: SCHIZOPHRENIFORM DISORDER
     Dosage: 3 MG PER DAY
     Route: 065
  2. RISPERIDONE [Suspect]
     Dosage: 2 MG PER DAY
     Route: 065
  3. BIPERIDENE [Concomitant]
     Indication: SCHIZOPHRENIFORM DISORDER
     Route: 065

REACTIONS (2)
  - Exposure during pregnancy [Recovered/Resolved]
  - Affective disorder [Recovered/Resolved]
